FAERS Safety Report 5835617-0 (Version None)
Quarter: 2008Q3

REPORT INFORMATION
  Report Type: 
  Country: None (occurrence: None)
  Receive Date: 20080806
  Receipt Date: 20080805
  Transmission Date: 20090109
  Serious: Yes (Death)
  Sender: FDA-Public Use
  Company Number: PHHO1999ES04447

PATIENT
  Sex: Male
  Weight: 78 kg

DRUGS (3)
  1. RAD 666 RAD+ [Suspect]
     Dosage: 0.75 MG, BID
     Route: 048
     Dates: start: 19990807, end: 19990828
  2. CYCLOSPORINE [Suspect]
  3. PREDNISONE [Suspect]

REACTIONS (2)
  - DEATH [None]
  - SEPSIS [None]
